FAERS Safety Report 8979212 (Version 1)
Quarter: 2012Q4

REPORT INFORMATION
  Report Type: 
  Country: FR (occurrence: FR)
  Receive Date: 20121221
  Receipt Date: 20121221
  Transmission Date: 20130627
  Serious: Yes (Death, Hospitalization)
  Sender: FDA-Public Use
  Company Number: FR-GLAXOSMITHKLINE-B0852582A

PATIENT
  Age: 90 None
  Sex: Male

DRUGS (15)
  1. ARIXTRA [Suspect]
     Indication: PRODUCT USED FOR UNKNOWN INDICATION
     Dosage: 2.5MG Per day
     Route: 058
     Dates: start: 20121009
  2. KARDEGIC [Suspect]
     Indication: PRODUCT USED FOR UNKNOWN INDICATION
     Route: 048
  3. IBUPROFEN [Suspect]
     Indication: ERYSIPELAS
     Dosage: 400MG Three times per day
     Route: 048
     Dates: start: 20121009
  4. PYOSTACINE [Suspect]
     Indication: ERYSIPELAS
     Dosage: 4TAB per day
     Route: 048
     Dates: start: 20121009
  5. ACETAMINOPHEN\CODEINE PHOSPHATE [Suspect]
     Indication: PAIN
     Dosage: 3G per day
     Route: 048
     Dates: start: 20121009
  6. CORDARONE [Concomitant]
     Dosage: 1TAB per day
     Route: 048
  7. TAMSULOSINE [Concomitant]
     Dosage: 1TAB per day
     Route: 048
  8. FEBUXOSTAT [Concomitant]
     Dosage: 1TAB per day
     Route: 048
  9. KALEORID [Concomitant]
     Dosage: 1UNIT per day
     Route: 048
  10. CYMBALTA [Concomitant]
     Route: 048
  11. CHIBRO-PROSCAR [Concomitant]
     Dosage: 1TAB per day
     Route: 048
  12. LANZOR [Concomitant]
     Dosage: 1CAP per day
     Route: 048
  13. NOVONORM [Concomitant]
     Dosage: 2MG Three times per day
     Route: 048
  14. ONGLYZA [Concomitant]
     Dosage: 1TAB per day
     Route: 048
  15. LASILIX [Concomitant]
     Dosage: 1TAB per day
     Route: 048

REACTIONS (6)
  - Haematoma [Not Recovered/Not Resolved]
  - Petechiae [Unknown]
  - Pain in extremity [Unknown]
  - General physical health deterioration [Not Recovered/Not Resolved]
  - Multi-organ failure [Fatal]
  - Off label use [Unknown]
